FAERS Safety Report 17040617 (Version 1)
Quarter: 2019Q4

REPORT INFORMATION
  Report Type: Spontaneous
  Country: CN (occurrence: CN)
  Receive Date: 20191117
  Receipt Date: 20191117
  Transmission Date: 20200122
  Serious: Yes (Other)
  Sender: FDA-Public Use
  Company Number: CN-ELI_LILLY_AND_COMPANY-CN201911003098

PATIENT
  Age: 66 Year
  Sex: Female

DRUGS (11)
  1. FORSTEO 250UG/ML [Suspect]
     Active Substance: TERIPARATIDE
     Indication: TYPE 2 DIABETES MELLITUS
     Dosage: 20 UG, DAILY
     Route: 058
     Dates: start: 20190930, end: 20191004
  2. TRESIBA [Suspect]
     Active Substance: INSULIN DEGLUDEC
     Indication: TYPE 2 DIABETES MELLITUS
     Dosage: 24 U, DAILY
     Route: 058
     Dates: start: 20191002, end: 20191005
  3. BAYASPIRIN [Suspect]
     Active Substance: ASPIRIN
     Indication: HYPERTENSION
     Dosage: 1 DOSAGE FORM, DAILY
     Route: 048
     Dates: start: 20190926, end: 20191004
  4. ASCORBIC ACID. [Concomitant]
     Active Substance: ASCORBIC ACID
     Indication: HENOCH-SCHONLEIN PURPURA
     Dosage: 1 DOSAGE FORM, TID
     Route: 048
     Dates: start: 20190926, end: 20191009
  5. INSULIN ASPART [Concomitant]
     Active Substance: INSULIN ASPART
     Indication: TYPE 2 DIABETES MELLITUS
     Dosage: 6 U, TID
     Route: 058
     Dates: start: 20190924, end: 20191002
  6. GLUCOPHAGE [Concomitant]
     Active Substance: METFORMIN HYDROCHLORIDE
     Indication: TYPE 2 DIABETES MELLITUS
     Dosage: 1 DOSAGE FORM, DAILY
     Route: 048
     Dates: start: 20190930, end: 20191025
  7. DILTIAZEM HYDROCHLORIDE. [Concomitant]
     Active Substance: DILTIAZEM HYDROCHLORIDE
     Indication: HYPERTENSION
     Dosage: 1 DOSAGE FORM, BID
     Route: 048
     Dates: start: 20190924, end: 20191008
  8. TOCOPHEROL [Concomitant]
     Active Substance: TOCOPHEROL
     Indication: HENOCH-SCHONLEIN PURPURA
     Dosage: 100 MG, DAILY
     Route: 048
     Dates: start: 20190926, end: 20191009
  9. VICTOZA [Suspect]
     Active Substance: LIRAGLUTIDE
     Indication: TYPE 2 DIABETES MELLITUS
     Dosage: 0.6 MG, DAILY
     Route: 058
     Dates: start: 20190930, end: 20191004
  10. GLUCOBAY [Concomitant]
     Active Substance: ACARBOSE
     Indication: TYPE 2 DIABETES MELLITUS
     Dosage: 1 DOSAGE FORM, TID
     Route: 048
     Dates: start: 20191002, end: 20191025
  11. ROSUVASTATIN CALCIUM. [Concomitant]
     Active Substance: ROSUVASTATIN CALCIUM
     Indication: LIPIDS DECREASED
     Dosage: 1 DOSAGE FORM, DAILY
     Route: 048
     Dates: start: 20190924, end: 20191025

REACTIONS (5)
  - Rash erythematous [Recovered/Resolved]
  - Rash pruritic [Recovering/Resolving]
  - Dermatitis allergic [Recovered/Resolved]
  - Off label use [Recovered/Resolved]
  - Drug eruption [Recovered/Resolved]

NARRATIVE: CASE EVENT DATE: 20190930
